FAERS Safety Report 4292541-5 (Version None)
Quarter: 2004Q1

REPORT INFORMATION
  Report Type: 
  Country: None (occurrence: None)
  Receive Date: 20040210
  Receipt Date: 20040130
  Transmission Date: 20041129
  Serious: Yes (Other)
  Sender: FDA-Public Use
  Company Number: HQWYE731130JAN04

PATIENT
  Age: 68 Year
  Sex: Male

DRUGS (3)
  1. CORDAREX (AMIODARONE, TABLET) [Suspect]
     Indication: ATRIAL FIBRILLATION
     Dosage: 200 MG 1X PER 1 DAY, ORAL
     Route: 048
     Dates: start: 20011001, end: 20020701
  2. UNSPECIFIED ANTIHYPERTENSIVE AGENT (UNSPECIFIED ANTIHYPERTENSIVE AGENT [Concomitant]
  3. UNSPECIFIED ANTIDIABETIC AGENT (UNSPECIFIED ANTIDIABETIC AGENT) [Concomitant]

REACTIONS (6)
  - COLOUR BLINDNESS [None]
  - CORNEAL DEPOSITS [None]
  - EYE HAEMORRHAGE [None]
  - OPTIC NERVE INJURY [None]
  - OPTIC NEUROPATHY [None]
  - PAPILLOEDEMA [None]
